FAERS Safety Report 8089056-5 (Version None)
Quarter: 2012Q1

REPORT INFORMATION
  Report Type: 
  Country: None (occurrence: None)
  Receive Date: 20120128
  Receipt Date: 20110715
  Transmission Date: 20120608
  Serious: No
  Sender: FDA-Public Use
  Company Number: US-ABBOTT-11P-163-0708793-00

PATIENT
  Sex: Male

DRUGS (3)
  1. HUMIRA [Suspect]
     Dates: start: 20110313, end: 20110313
  2. HUMIRA [Suspect]
     Indication: CROHN'S DISEASE
     Dosage: DAY ONE
     Route: 058
     Dates: start: 20110224, end: 20110224
  3. HUMIRA [Suspect]

REACTIONS (14)
  - HEADACHE [None]
  - COUGH [None]
  - DIARRHOEA [None]
  - OROPHARYNGEAL PAIN [None]
  - SINUS CONGESTION [None]
  - BLOOD URINE PRESENT [None]
  - SPUTUM DISCOLOURED [None]
  - BRONCHITIS [None]
  - PULMONARY CONGESTION [None]
  - SINUSITIS [None]
  - DYSPHONIA [None]
  - INCREASED UPPER AIRWAY SECRETION [None]
  - BACK PAIN [None]
  - DRUG INEFFECTIVE [None]
